FAERS Safety Report 7007189-9 (Version None)
Quarter: 2010Q3

REPORT INFORMATION
  Report Type: 
  Country: None (occurrence: None)
  Receive Date: 20100922
  Receipt Date: 20100913
  Transmission Date: 20110219
  Serious: Yes (Hospitalization)
  Sender: FDA-Public Use
  Company Number: US-B.I. PHARMACEUTICALS,INC./RIDGEFIELD-2010-BP-10368BP

PATIENT
  Sex: Female

DRUGS (10)
  1. SPIRIVA [Suspect]
     Indication: CHRONIC OBSTRUCTIVE PULMONARY DISEASE
     Dosage: 18 MCG
     Route: 055
     Dates: start: 20090801
  2. DIOVAN [Concomitant]
     Indication: HYPERTENSION
     Dosage: 320 MG
     Route: 048
  3. AMLODIPINE [Concomitant]
     Dosage: 5 MG
     Route: 048
  4. ATENOLOL [Concomitant]
     Indication: HYPERTENSION
     Dosage: 50 MG
     Route: 048
  5. LOVASTATIN [Concomitant]
     Indication: BLOOD CHOLESTEROL INCREASED
     Dosage: 60 MG
     Route: 048
  6. LEVOXYL [Concomitant]
     Indication: HYPOTHYROIDISM
     Dosage: 88 MCG
     Route: 048
  7. LANTUS [Concomitant]
     Indication: DIABETES MELLITUS
     Dosage: 10 U
     Route: 058
  8. ASPIRIN [Concomitant]
     Indication: PROPHYLAXIS
     Dosage: 10 MG
     Route: 048
  9. WARFARIN [Concomitant]
     Indication: CARDIAC DISORDER
     Dosage: 5 MG
     Route: 048
  10. SYMBICORT [Concomitant]
     Indication: CHRONIC OBSTRUCTIVE PULMONARY DISEASE
     Route: 055

REACTIONS (3)
  - CARDIAC DISORDER [None]
  - CAROTID ARTERY OCCLUSION [None]
  - INCISION SITE PAIN [None]
